FAERS Safety Report 20086047 (Version 1)
Quarter: 2021Q4

REPORT INFORMATION
  Report Type: Spontaneous
  Country: GB (occurrence: None)
  Receive Date: 20211118
  Receipt Date: 20211118
  Transmission Date: 20220303
  Serious: Yes (Other)
  Sender: FDA-Public Use
  Company Number: GB-Merck Healthcare KGaA-9279520

PATIENT
  Age: 48 Year
  Sex: Female

DRUGS (2)
  1. MAVENCLAD [Suspect]
     Active Substance: CLADRIBINE
     Indication: Multiple sclerosis
     Dosage: YEAR ONE WEEK ONE THERAPY
     Route: 048
     Dates: start: 20210920
  2. MAVENCLAD [Suspect]
     Active Substance: CLADRIBINE
     Dosage: YEAR ONE WEEK FIVE THERAPY: ONE TABLET ON DAYS 1 TO 5
     Route: 048
     Dates: start: 20211018

REACTIONS (18)
  - Suicidal ideation [Not Recovered/Not Resolved]
  - Depressed mood [Unknown]
  - Emotional distress [Unknown]
  - Lacrimation increased [Unknown]
  - Eye pruritus [Unknown]
  - Ocular hyperaemia [Unknown]
  - Dyspnoea [Unknown]
  - Spinal pain [Unknown]
  - Cold-stimulus headache [Unknown]
  - Band sensation [Unknown]
  - Multiple sclerosis relapse [Unknown]
  - Anxiety [Unknown]
  - Middle insomnia [Unknown]
  - Abnormal dreams [Unknown]
  - Hypoaesthesia [Unknown]
  - Sedation [Unknown]
  - Fatigue [Unknown]
  - Malaise [Unknown]

NARRATIVE: CASE EVENT DATE: 20210101
